FAERS Safety Report 16753084 (Version 1)
Quarter: 2019Q3

REPORT INFORMATION
  Report Type: Spontaneous
  Country: SE (occurrence: SE)
  Receive Date: 20190829
  Receipt Date: 20190829
  Transmission Date: 20191005
  Serious: Yes (Other)
  Sender: FDA-Public Use
  Company Number: SE-B.I. PHARMACEUTICALS,INC./RIDGEFIELD-2019-12-002696

PATIENT
  Age: 34 Year
  Sex: Female
  Weight: 75 kg

DRUGS (1)
  1. SIFROL [Suspect]
     Active Substance: PRAMIPEXOLE
     Indication: RESTLESS LEGS SYNDROME
     Dosage: 1 TABLETT 0,18MG 805168
     Route: 065
     Dates: start: 20190618, end: 20190801

REACTIONS (15)
  - Panic attack [Unknown]
  - Paraesthesia [Unknown]
  - Tinnitus [Unknown]
  - Muscle twitching [Unknown]
  - Tremor [Unknown]
  - Musculoskeletal stiffness [Unknown]
  - Palpitations [Unknown]
  - Withdrawal syndrome [Unknown]
  - Muscular weakness [Unknown]
  - Derealisation [Unknown]
  - Muscle spasms [Unknown]
  - Vomiting [Unknown]
  - Nausea [Unknown]
  - Anxiety [Unknown]
  - Asthenia [Unknown]

NARRATIVE: CASE EVENT DATE: 2019
